FAERS Safety Report 5458082-4 (Version None)
Quarter: 2007Q3

REPORT INFORMATION
  Report Type: 
  Country: None (occurrence: None)
  Receive Date: 20070919
  Receipt Date: 20070911
  Transmission Date: 20080115
  Serious: Yes (Hospitalization)
  Sender: FDA-Public Use
  Company Number: PHBS2007BR14975

PATIENT
  Age: 73 Year
  Sex: Female
  Weight: 116 kg

DRUGS (9)
  1. DIOVAN HCT [Suspect]
     Indication: HYPERTENSION
     Dosage: 1DF/ QD
     Route: 048
     Dates: start: 20030101
  2. ALENDRONATE SODIUM [Concomitant]
     Dosage: 70 MG, QW
     Dates: start: 20040101
  3. MAREVAN [Concomitant]
     Dosage: 5 MG, QD
     Route: 048
  4. SOTALOL HYDROCHLORIDE [Concomitant]
     Dosage: 120 MG, Q12H
     Route: 048
  5. HYDROCHLOROTHIAZIDE [Suspect]
     Dosage: 25 MG, QD
     Route: 048
  6. SOMINEX [Concomitant]
     Indication: SLEEP DISORDER
     Route: 048
  7. TANDRILAX [Concomitant]
     Indication: BACK PAIN
  8. CATAFLAM [Concomitant]
     Indication: BACK PAIN
  9. DORFLEX [Concomitant]
     Indication: BACK PAIN

REACTIONS (6)
  - ARRHYTHMIA [None]
  - BACK PAIN [None]
  - DIZZINESS [None]
  - FEELING ABNORMAL [None]
  - HYPERTENSION [None]
  - VISUAL DISTURBANCE [None]
